FAERS Safety Report 7373596-8 (Version None)
Quarter: 2011Q1

REPORT INFORMATION
  Report Type: 
  Country: None (occurrence: None)
  Receive Date: 20110325
  Receipt Date: 20110322
  Transmission Date: 20110831
  Serious: Yes (Other)
  Sender: FDA-Public Use
  Company Number: DE-CEPHALON-2010005560

PATIENT
  Age: 33 Year
  Sex: Male

DRUGS (4)
  1. MODAFINIL [Suspect]
     Route: 048
  2. MODAFINIL [Suspect]
     Indication: OBSESSIVE-COMPULSIVE DISORDER
     Route: 048
  3. MODAFINIL [Suspect]
     Indication: SOMNOLENCE
     Route: 048
  4. ESCITALOPRAM [Concomitant]

REACTIONS (3)
  - PARANOIA [None]
  - AGITATION [None]
  - IRRITABILITY [None]
